FAERS Safety Report 13410655 (Version 2)
Quarter: 2017Q4

REPORT INFORMATION
  Report Type: Spontaneous
  Country: US (occurrence: US)
  Receive Date: 20170406
  Receipt Date: 20171123
  Transmission Date: 20180320
  Serious: No
  Sender: FDA-Public Use
  Company Number: US-JNJFOC-20170227597

PATIENT
  Sex: Male

DRUGS (6)
  1. RISPERDAL [Suspect]
     Active Substance: RISPERIDONE
     Indication: AUTISM SPECTRUM DISORDER
     Dosage: HALF, THRICE A DAY
     Route: 048
     Dates: start: 20060425, end: 20071130
  2. RISPERDAL [Suspect]
     Active Substance: RISPERIDONE
     Indication: AUTISM SPECTRUM DISORDER
     Dosage: RISPERIDONE DECREASED TO 01 MG, HALF THRICE A DAY FOR 06 DAYS THEN DISCONTINUED.
     Route: 048
     Dates: start: 20061228
  3. RISPERDAL [Suspect]
     Active Substance: RISPERIDONE
     Indication: OBSESSIVE-COMPULSIVE DISORDER
     Dosage: RISPERIDONE DECREASED TO 01 MG, HALF THRICE A DAY FOR 06 DAYS THEN DISCONTINUED.
     Route: 048
     Dates: start: 20061228
  4. RISPERDAL [Suspect]
     Active Substance: RISPERIDONE
     Indication: OBSESSIVE-COMPULSIVE DISORDER
     Dosage: HALF, THRICE A DAY
     Route: 048
     Dates: start: 20060425, end: 20071130
  5. RISPERDAL [Suspect]
     Active Substance: RISPERIDONE
     Indication: OBSESSIVE-COMPULSIVE DISORDER
     Route: 048
     Dates: start: 20060323
  6. RISPERDAL [Suspect]
     Active Substance: RISPERIDONE
     Indication: AUTISM SPECTRUM DISORDER
     Route: 048
     Dates: start: 20060323

REACTIONS (2)
  - Gynaecomastia [Unknown]
  - Emotional disorder [Unknown]
